FAERS Safety Report 24274703 (Version 3)
Quarter: 2024Q4

REPORT INFORMATION
  Report Type: Spontaneous
  Country: DE (occurrence: DE)
  Receive Date: 20240902
  Receipt Date: 20241106
  Transmission Date: 20250115
  Serious: No
  Sender: PFIZER
  Company Number: DE-PFIZER INC-202400240849

PATIENT

DRUGS (1)
  1. MEDROXYPROGESTERONE [Suspect]
     Active Substance: MEDROXYPROGESTERONE
     Dosage: UNK

REACTIONS (1)
  - Needle issue [Unknown]
